FAERS Safety Report 10206717 (Version 1)
Quarter: 2014Q2

REPORT INFORMATION
  Report Type: Spontaneous
  Country: SE (occurrence: SE)
  Receive Date: 20140530
  Receipt Date: 20140530
  Transmission Date: 20141212
  Serious: Yes (Hospitalization)
  Sender: FDA-Public Use
  Company Number: SE-SA-2014SA066146

PATIENT
  Age: 81 Year
  Sex: Female

DRUGS (8)
  1. PLAVIX [Suspect]
     Indication: PRODUCT USED FOR UNKNOWN INDICATION
     Route: 065
     Dates: start: 20140424
  2. ELIQUIS [Suspect]
     Indication: PRODUCT USED FOR UNKNOWN INDICATION
     Dosage: 2X2.5 MG
     Route: 065
     Dates: start: 20140424
  3. FURIX [Suspect]
     Indication: PRODUCT USED FOR UNKNOWN INDICATION
     Dosage: 4X40 MG
     Route: 065
     Dates: start: 20140424
  4. POTASSIUM [Concomitant]
  5. FOLACIN [Concomitant]
  6. BISOPROLOL [Concomitant]
  7. VITAMIN B12 [Concomitant]
  8. SIMVASTATIN [Concomitant]

REACTIONS (4)
  - Unresponsive to stimuli [Not Recovered/Not Resolved]
  - Diarrhoea [Not Recovered/Not Resolved]
  - Confusional state [Not Recovered/Not Resolved]
  - Dizziness [Not Recovered/Not Resolved]
